FAERS Safety Report 12052467 (Version 1)
Quarter: 2016Q1

REPORT INFORMATION
  Report Type: Spontaneous
  Country: US (occurrence: US)
  Receive Date: 20160209
  Receipt Date: 20160209
  Transmission Date: 20160526
  Serious: No
  Sender: FDA-Public Use
  Company Number: US-NOVOPROD-386298

PATIENT
  Sex: Male

DRUGS (6)
  1. NOVOSEVEN RT [Suspect]
     Active Substance: COAGULATION FACTOR VIIA RECOMBINANT HUMAN
     Indication: HAEMORRHAGE PROPHYLAXIS
  2. FEIBA [Concomitant]
     Active Substance: ANTI-INHIBITOR COAGULANT COMPLEX
     Indication: HAEMORRHAGE PROPHYLAXIS
  3. NOVOSEVEN RT [Suspect]
     Active Substance: COAGULATION FACTOR VIIA RECOMBINANT HUMAN
     Indication: FACTOR VIII DEFICIENCY
     Dosage: UNKNOWN
     Dates: start: 1999
  4. FACTOR XIII [Concomitant]
     Active Substance: FACTOR XIII CONCENTRATE (HUMAN)
     Indication: FACTOR VIII DEFICIENCY
  5. FACTOR XIII [Concomitant]
     Active Substance: FACTOR XIII CONCENTRATE (HUMAN)
     Indication: HAEMORRHAGE PROPHYLAXIS
  6. FEIBA [Concomitant]
     Active Substance: ANTI-INHIBITOR COAGULANT COMPLEX
     Indication: FACTOR VIII DEFICIENCY

REACTIONS (2)
  - Drug ineffective [Unknown]
  - Neutralising antibodies [Not Recovered/Not Resolved]
